FAERS Safety Report 6357395-1 (Version None)
Quarter: 2009Q3

REPORT INFORMATION
  Report Type: 
  Country: None (occurrence: None)
  Receive Date: 20090916
  Receipt Date: 20080428
  Transmission Date: 20100115
  Serious: Yes (Hospitalization)
  Sender: FDA-Public Use
  Company Number: US-ASTRAZENECA-2006UW05313

PATIENT
  Age: 628 Month
  Sex: Female
  Weight: 107 kg

DRUGS (22)
  1. SEROQUEL [Suspect]
     Indication: BIPOLAR I DISORDER
     Route: 048
     Dates: start: 20000101, end: 20000901
  2. SEROQUEL [Suspect]
     Indication: SLEEP DISORDER
     Route: 048
     Dates: start: 20000101, end: 20000901
  3. SEROQUEL [Suspect]
     Route: 048
     Dates: start: 20000321
  4. SEROQUEL [Suspect]
     Route: 048
     Dates: start: 20000321
  5. SEROQUEL [Suspect]
     Route: 048
     Dates: start: 20050601, end: 20051101
  6. SEROQUEL [Suspect]
     Route: 048
     Dates: start: 20050601, end: 20051101
  7. ZYPREXA [Suspect]
     Indication: BIPOLAR I DISORDER
     Dosage: 5 TO 15 MG. TOTAL DAILY DOSE 15 MG
     Dates: start: 20001001, end: 20040601
  8. RISPERDAL [Suspect]
     Indication: BIPOLAR I DISORDER
     Dates: start: 20010101, end: 20030101
  9. LITHIUM CARBONATE [Suspect]
  10. GEODON [Concomitant]
     Dates: start: 20050101
  11. NITROSTAT [Concomitant]
     Dosage: 0.4 MG AS DIRECTED
     Route: 060
     Dates: start: 19991216
  12. DIOVAN [Concomitant]
     Route: 048
     Dates: start: 20030704
  13. PHENERGAN [Concomitant]
     Dosage: 25 MG, 1-2 TABS Q 4-6 HOURS AS REQUIRED
     Route: 048
     Dates: start: 20030707
  14. LIPITOR [Concomitant]
     Dates: start: 20051006
  15. VALTREX [Concomitant]
     Route: 048
     Dates: start: 20050922
  16. SYNTHROID [Concomitant]
     Dates: start: 20000321
  17. OGEN [Concomitant]
     Dates: start: 20001130
  18. COZAAR [Concomitant]
     Dates: start: 20000321
  19. TRAZODONE [Concomitant]
     Dosage: 100 MG 1-3 EVERY NIGHT
     Dates: start: 20050905
  20. PAXIL [Concomitant]
     Route: 048
     Dates: start: 19991216
  21. ESTRACE [Concomitant]
     Dates: start: 19991216
  22. HYDROCHLOROT [Concomitant]
     Dates: start: 19991216

REACTIONS (8)
  - BLADDER OPERATION [None]
  - BLOOD CHOLESTEROL INCREASED [None]
  - DIABETES MELLITUS [None]
  - DIABETES MELLITUS INADEQUATE CONTROL [None]
  - FEMORAL NERVE INJURY [None]
  - GLYCOSURIA [None]
  - MANIA [None]
  - THERAPEUTIC AGENT TOXICITY [None]
